FAERS Safety Report 7336429-1 (Version None)
Quarter: 2011Q1

REPORT INFORMATION
  Report Type: 
  Country: None (occurrence: None)
  Receive Date: 20110307
  Receipt Date: 20110301
  Transmission Date: 20110831
  Serious: Yes (Death, Disabling, Other)
  Sender: FDA-Public Use
  Company Number: US-AMGEN-USASP2011009503

PATIENT
  Age: 93 Year
  Sex: Male
  Weight: 82.993 kg

DRUGS (9)
  1. NPLATE [Suspect]
     Indication: IDIOPATHIC THROMBOCYTOPENIC PURPURA
     Dosage: 340 A?G, QWK
     Route: 058
     Dates: start: 20101007, end: 20110203
  2. PREDNISONE [Concomitant]
  3. CELLCEPT [Concomitant]
  4. RITUXIMAB [Concomitant]
     Dosage: 700 MG, UNK
  5. FAMOTIDINE [Concomitant]
  6. TYLENOL (CAPLET) [Concomitant]
  7. DEXAMETHASONE [Concomitant]
  8. DIPHENHYDRAMINE [Concomitant]
  9. ALOXI [Concomitant]

REACTIONS (27)
  - SQUAMOUS CELL CARCINOMA [None]
  - BODY TINEA [None]
  - HAEMORRHAGE [None]
  - MYALGIA [None]
  - VERTIGO [None]
  - THROMBOCYTOPENIA [None]
  - ECCHYMOSIS [None]
  - CONTUSION [None]
  - HEADACHE [None]
  - ASTHENIA [None]
  - PETECHIAE [None]
  - OEDEMA PERIPHERAL [None]
  - EXCORIATION [None]
  - THERAPEUTIC RESPONSE DECREASED [None]
  - HYPERTENSION [None]
  - WEIGHT DECREASED [None]
  - NASAL CONGESTION [None]
  - WHITE BLOOD CELL COUNT INCREASED [None]
  - CONSTIPATION [None]
  - FALL [None]
  - LIMB DISCOMFORT [None]
  - ARTHRALGIA [None]
  - MYELODYSPLASTIC SYNDROME [None]
  - DIZZINESS [None]
  - DECREASED APPETITE [None]
  - PRODUCTIVE COUGH [None]
  - MALAISE [None]
